FAERS Safety Report 20822591 (Version 5)
Quarter: 2022Q3

REPORT INFORMATION
  Report Type: Spontaneous
  Country: US (occurrence: US)
  Receive Date: 20220512
  Receipt Date: 20220923
  Transmission Date: 20221026
  Serious: No
  Sender: FDA-Public Use
  Company Number: US-BRISTOL-MYERS SQUIBB COMPANY-2022-022036

PATIENT
  Age: 67 Year
  Sex: Female

DRUGS (3)
  1. REVLIMID [Suspect]
     Active Substance: LENALIDOMIDE
     Indication: Product used for unknown indication
     Route: 048
     Dates: start: 20210621
  2. REVLIMID [Suspect]
     Active Substance: LENALIDOMIDE
     Indication: Product used for unknown indication
     Route: 048
     Dates: start: 20210623
  3. REVLIMID [Suspect]
     Active Substance: LENALIDOMIDE
     Dosage: FREQUENCY: EVERY OTHER DAY.
     Route: 048

REACTIONS (9)
  - Pain [Unknown]
  - Pain [Unknown]
  - Tremor [Unknown]
  - Malaise [Unknown]
  - Peripheral swelling [Unknown]
  - Taste disorder [Unknown]
  - Dizziness [Unknown]
  - Ageusia [Unknown]
  - Dizziness [Unknown]

NARRATIVE: CASE EVENT DATE: 20220414
